FAERS Safety Report 20195458 (Version 1)
Quarter: 2021Q4

REPORT INFORMATION
  Report Type: Spontaneous
  Country: US (occurrence: None)
  Receive Date: 20211216
  Receipt Date: 20211216
  Transmission Date: 20220303
  Serious: Yes (Hospitalization)
  Sender: FDA-Public Use
  Company Number: None

PATIENT
  Age: 16 Year
  Sex: Female
  Weight: 90.2 kg

DRUGS (8)
  1. MISOPROSTOL [Suspect]
     Active Substance: MISOPROSTOL
     Indication: Postpartum haemorrhage
     Dosage: OTHER FREQUENCY : ONCE;?
     Route: 002
     Dates: start: 20211127, end: 20211127
  2. OXYTOCIN [Concomitant]
     Active Substance: OXYTOCIN
     Dates: start: 20211127, end: 20211127
  3. DIPHENHYDRAMINE [Concomitant]
     Active Substance: DIPHENHYDRAMINE
     Dates: start: 20211127, end: 20211127
  4. FENTANYL [Concomitant]
     Active Substance: FENTANYL
     Dates: start: 20211125, end: 20211127
  5. MORPHINE [Concomitant]
     Active Substance: MORPHINE
     Dates: start: 20211127, end: 20211127
  6. METHYLERGONOVINE [Concomitant]
     Active Substance: METHYLERGONOVINE
     Dates: start: 20211127, end: 20211127
  7. ONDANSETRON [Concomitant]
     Active Substance: ONDANSETRON
     Dates: start: 20211125, end: 20211127
  8. TRANEXAMIC ACID [Concomitant]
     Active Substance: TRANEXAMIC ACID
     Dates: start: 20211127, end: 20211127

REACTIONS (34)
  - Hyperthermia malignant [None]
  - Chills [None]
  - Anxiety [None]
  - Chest pain [None]
  - Vomiting [None]
  - Confusional state [None]
  - Tachycardia [None]
  - Blood pressure increased [None]
  - Seizure [None]
  - Unresponsive to stimuli [None]
  - Pyrexia [None]
  - Hypotension [None]
  - Hypoxia [None]
  - Mydriasis [None]
  - Leukocytosis [None]
  - Blood fibrinogen increased [None]
  - Blood creatinine decreased [None]
  - Blood alkaline phosphatase increased [None]
  - Blood pH decreased [None]
  - Blood bicarbonate decreased [None]
  - Blood lactic acid decreased [None]
  - Lung infiltration [None]
  - Aphasia [None]
  - Dysarthria [None]
  - Encephalopathy [None]
  - Sepsis [None]
  - Aggression [None]
  - Anaphylactic reaction [None]
  - Anaphylactoid syndrome of pregnancy [None]
  - Amniotic cavity infection [None]
  - Endometritis [None]
  - Haemoglobin decreased [None]
  - Electrocardiogram T wave inversion [None]
  - Beta haemolytic streptococcal infection [None]

NARRATIVE: CASE EVENT DATE: 20211127
